FAERS Safety Report 22338998 (Version 1)
Quarter: 2023Q2

REPORT INFORMATION
  Report Type: Spontaneous
  Country: US (occurrence: None)
  Receive Date: 20230518
  Receipt Date: 20230518
  Transmission Date: 20230722
  Serious: No
  Sender: FDA-Public Use
  Company Number: US-ROCHE-3265946

PATIENT
  Sex: Female

DRUGS (11)
  1. ACTEMRA [Suspect]
     Active Substance: TOCILIZUMAB
     Indication: C-reactive protein increased
     Dosage: 0.9 ML
     Route: 058
  2. ACTEMRA [Suspect]
     Active Substance: TOCILIZUMAB
  3. ACTEMRA [Suspect]
     Active Substance: TOCILIZUMAB
  4. ABILIFY [Concomitant]
     Active Substance: ARIPIPRAZOLE
  5. ARIPIPRAZOLE [Concomitant]
     Active Substance: ARIPIPRAZOLE
  6. CARISOPRODOL [Concomitant]
     Active Substance: CARISOPRODOL
  7. HYDROCODONE [Concomitant]
     Active Substance: HYDROCODONE
  8. ILEVRO [Concomitant]
     Active Substance: NEPAFENAC
  9. JANUMET [Concomitant]
     Active Substance: METFORMIN HYDROCHLORIDE\SITAGLIPTIN PHOSPHATE
  10. PANTOPRAZOLE [Concomitant]
     Active Substance: PANTOPRAZOLE
  11. VOLTAREN [Concomitant]
     Active Substance: DICLOFENAC SODIUM

REACTIONS (2)
  - Off label use [Unknown]
  - No adverse event [Unknown]
